FAERS Safety Report 7606440-1 (Version None)
Quarter: 2011Q3

REPORT INFORMATION
  Report Type: 
  Country: None (occurrence: None)
  Receive Date: 20110712
  Receipt Date: 20110712
  Transmission Date: 20111222
  Serious: Yes (Hospitalization)
  Sender: FDA-Public Use
  Company Number: None

PATIENT
  Age: 56 Year
  Sex: Male
  Weight: 89.3 kg

DRUGS (2)
  1. NAPROXEN [Suspect]
     Indication: PAIN
     Dosage: 250 MG BID PO
     Route: 048
     Dates: start: 20110201, end: 20110321
  2. NAPROXEN [Suspect]
     Indication: HYPERTENSION
     Dosage: 250 MG BID PO
     Route: 048
     Dates: start: 20110201, end: 20110321

REACTIONS (2)
  - RENAL FAILURE ACUTE [None]
  - CELLULITIS [None]
